FAERS Safety Report 4566485-5 (Version None)
Quarter: 2005Q1

REPORT INFORMATION
  Report Type: 
  Country: None (occurrence: None)
  Receive Date: 20050128
  Receipt Date: 20050121
  Transmission Date: 20050727
  Serious: Yes (Hospitalization)
  Sender: FDA-Public Use
  Company Number: KII-2005-0014796

PATIENT
  Age: 22 Month
  Sex: Female

DRUGS (2)
  1. OXYCODONE HCL [Suspect]
     Dosage: ORAL
     Route: 048
  2. CYCLOBENZAPRINE (CYCLOBENZAPRINE) [Suspect]

REACTIONS (4)
  - ACCIDENTAL EXPOSURE [None]
  - MIOSIS [None]
  - RESPIRATORY DEPRESSION [None]
  - SOMNOLENCE [None]
